FAERS Safety Report 5838606-5 (Version None)
Quarter: 2008Q3

REPORT INFORMATION
  Report Type: 
  Country: None (occurrence: None)
  Receive Date: 20080808
  Receipt Date: 20080529
  Transmission Date: 20090109
  Serious: No
  Sender: FDA-Public Use
  Company Number: A0730187A

PATIENT
  Age: 79 Year
  Sex: Male

DRUGS (1)
  1. ALTABAX [Suspect]
     Indication: BASAL CELL CARCINOMA
     Dosage: 1APP TWICE PER DAY
     Route: 061
     Dates: start: 20080501, end: 20080521

REACTIONS (4)
  - ILL-DEFINED DISORDER [None]
  - POSTOPERATIVE WOUND COMPLICATION [None]
  - WOUND COMPLICATION [None]
  - WOUND SECRETION [None]
